FAERS Safety Report 6257067-8 (Version None)
Quarter: 2009Q3

REPORT INFORMATION
  Report Type: 
  Country: None (occurrence: None)
  Receive Date: 20090706
  Receipt Date: 20090623
  Transmission Date: 20100115
  Serious: Yes (Hospitalization)
  Sender: FDA-Public Use
  Company Number: A0795225A

PATIENT
  Age: 59 Year
  Sex: Male

DRUGS (2)
  1. AVANDAMET [Suspect]
     Route: 065
     Dates: start: 20031214, end: 20070426
  2. AVANDIA [Suspect]
     Dosage: 8MG PER DAY
     Route: 065
     Dates: start: 20060612, end: 20070201

REACTIONS (1)
  - ACUTE MYOCARDIAL INFARCTION [None]
